FAERS Safety Report 10537009 (Version 2)
Quarter: 2014Q4

REPORT INFORMATION
  Report Type: Spontaneous
  Country: US (occurrence: US)
  Receive Date: 20141022
  Receipt Date: 20141118
  Transmission Date: 20150529
  Serious: No
  Sender: FDA-Public Use
  Company Number: US-GILEAD-2014-0119250

PATIENT
  Age: 70 Year
  Sex: Female

DRUGS (1)
  1. LETAIRIS [Suspect]
     Active Substance: AMBRISENTAN
     Indication: COR PULMONALE CHRONIC
     Dosage: 10 MG, QD
     Route: 065
     Dates: start: 20140207

REACTIONS (6)
  - Cataract [Unknown]
  - Middle insomnia [Unknown]
  - Dyspnoea [Unknown]
  - Gait disturbance [Unknown]
  - Visual impairment [Unknown]
  - Nasal congestion [Unknown]
